FAERS Safety Report 4638001-0 (Version None)
Quarter: 2005Q2

REPORT INFORMATION
  Report Type: 
  Country: None (occurrence: None)
  Receive Date: 20050415
  Receipt Date: 20050411
  Transmission Date: 20051028
  Serious: No
  Sender: FDA-Public Use
  Company Number: 2005-124483-NL

PATIENT
  Age: 53 Year
  Sex: Female

DRUGS (2)
  1. MIRTAZAPINE [Suspect]
     Indication: DEPRESSION
     Dosage: 15 MG
     Dates: start: 20041111, end: 20041122
  2. VENLAFAXINE HCL [Suspect]
     Indication: DEPRESSION
     Dosage: 100 MG
     Dates: start: 20030715, end: 20041108

REACTIONS (1)
  - SEROTONIN SYNDROME [None]
